FAERS Safety Report 6149230-1 (Version None)
Quarter: 2009Q2

REPORT INFORMATION
  Report Type: 
  Country: None (occurrence: None)
  Receive Date: 20090407
  Receipt Date: 20090303
  Transmission Date: 20091009
  Serious: Yes (Other)
  Sender: FDA-Public Use
  Company Number: 2009S1003827

PATIENT
  Age: 77 Year
  Sex: Female

DRUGS (4)
  1. CITALOPRAM HYDROBROMIDE [Suspect]
     Indication: DRUG USE FOR UNKNOWN INDICATION
  2. LAMICTAL [Suspect]
     Indication: EPILEPSY
  3. OXAZEPAM [Suspect]
     Indication: DRUG USE FOR UNKNOWN INDICATION
  4. ERGENYL (VALPORATE SODIUM) [Suspect]
     Indication: DRUG USE FOR UNKNOWN INDICATION

REACTIONS (13)
  - ANXIETY [None]
  - CONDITION AGGRAVATED [None]
  - CONFUSIONAL STATE [None]
  - CONVULSION [None]
  - DEMENTIA [None]
  - DIZZINESS [None]
  - DRUG INEFFECTIVE [None]
  - DYSPNOEA [None]
  - FALL [None]
  - JOINT STIFFNESS [None]
  - PAIN [None]
  - PARKINSON'S DISEASE [None]
  - PYREXIA [None]
